FAERS Safety Report 6631065-4 (Version None)
Quarter: 2010Q1

REPORT INFORMATION
  Report Type: 
  Country: None (occurrence: None)
  Receive Date: 20100309
  Receipt Date: 20100224
  Transmission Date: 20100710
  Serious: Yes (Life-Threatening, Hospitalization)
  Sender: FDA-Public Use
  Company Number: 231923J10USA

PATIENT
  Age: 60 Year
  Sex: Male

DRUGS (5)
  1. REBIF [Suspect]
     Indication: MULTIPLE SCLEROSIS
     Dosage: 44 MCG, 3 IN 1 WEEKS, SUBCUTANEOUS
     Route: 058
     Dates: start: 20090819
  2. TEGRETOL [Concomitant]
  3. WELLBUTRIN [Concomitant]
  4. LOTREL (LOTREL  /01289101/) [Concomitant]
  5. COREG [Concomitant]

REACTIONS (7)
  - CHEST PAIN [None]
  - CONDITION AGGRAVATED [None]
  - DYSKINESIA [None]
  - FEEDING DISORDER [None]
  - NUCLEAR MAGNETIC RESONANCE IMAGING BRAIN ABNORMAL [None]
  - RESPIRATORY FAILURE [None]
  - TRIGEMINAL NEURALGIA [None]
